FAERS Safety Report 21136498 (Version 1)
Quarter: 2022Q3

REPORT INFORMATION
  Report Type: Report from Study
  Country: US (occurrence: US)
  Receive Date: 20220727
  Receipt Date: 20220727
  Transmission Date: 20221026
  Serious: Yes (Other)
  Sender: FDA-Public Use
  Company Number: US-PFIZER INC-202201002551

PATIENT

DRUGS (3)
  1. SULFAMETHOXAZOLE\TRIMETHOPRIM [Suspect]
     Active Substance: SULFAMETHOXAZOLE\TRIMETHOPRIM
     Indication: Prophylaxis
     Dosage: UNK
  2. INFLIXIMAB [Concomitant]
     Active Substance: INFLIXIMAB
     Indication: Immunosuppressant drug therapy
     Dosage: UNK
  3. ADALIMUMAB [Concomitant]
     Active Substance: ADALIMUMAB
     Indication: Immunosuppressant drug therapy
     Dosage: UNK

REACTIONS (1)
  - Oral candidiasis [Recovered/Resolved]
